FAERS Safety Report 22027272 (Version 4)
Quarter: 2023Q2

REPORT INFORMATION
  Report Type: Report from Study
  Country: US (occurrence: US)
  Receive Date: 20230223
  Receipt Date: 20230419
  Transmission Date: 20230721
  Serious: No
  Sender: FDA-Public Use
  Company Number: US-002147023-NVSC2023US036354

PATIENT
  Sex: Male

DRUGS (2)
  1. ENTRESTO [Suspect]
     Active Substance: SACUBITRIL\VALSARTAN
     Indication: Product used for unknown indication
     Dosage: 0.5 DOSAGE FORM, QD (24/26 MG 1/2 TAB, ? TAB ONCE DAILY, EVERY NIGHT)
     Route: 048
     Dates: start: 202301
  2. CARVEDILOL [Concomitant]
     Active Substance: CARVEDILOL
     Indication: Blood pressure increased
     Dosage: UNK
     Route: 065

REACTIONS (10)
  - Cardiac valve disease [Unknown]
  - Weight increased [Unknown]
  - Ejection fraction decreased [Unknown]
  - Weight decreased [Unknown]
  - Cough [Recovering/Resolving]
  - Hypotension [Unknown]
  - Fatigue [Unknown]
  - Prescribed underdose [Unknown]
  - Wrong technique in product usage process [Unknown]
  - Off label use [Unknown]
